FAERS Safety Report 8300984-5 (Version None)
Quarter: 2012Q2

REPORT INFORMATION
  Report Type: 
  Country: None (occurrence: None)
  Receive Date: 20120420
  Receipt Date: 20120409
  Transmission Date: 20120825
  Serious: Yes (Life-Threatening)
  Sender: FDA-Public Use
  Company Number: GB-BRISTOL-MYERS SQUIBB COMPANY-16516791

PATIENT
  Age: 33 Year
  Sex: Male

DRUGS (4)
  1. ATOVAQUONE [Concomitant]
     Indication: PROPHYLAXIS
  2. EFAVIRENZ [Suspect]
     Indication: HIV INFECTION
     Route: 048
  3. EMTRICITABINE [Suspect]
     Indication: HIV INFECTION
     Route: 065
  4. TENOFOVIR [Suspect]
     Indication: HIV INFECTION
     Route: 065

REACTIONS (1)
  - IMMUNE RECONSTITUTION SYNDROME [None]
